FAERS Safety Report 16115028 (Version 1)
Quarter: 2019Q1

REPORT INFORMATION
  Report Type: Spontaneous
  Country: US (occurrence: US)
  Receive Date: 20190325
  Receipt Date: 20190325
  Transmission Date: 20190418
  Serious: Yes (Other)
  Sender: FDA-Public Use
  Company Number: US-BRISTOL-MYERS SQUIBB COMPANY-BMS-2019-026289

PATIENT
  Sex: Female
  Weight: 110.9 kg

DRUGS (5)
  1. ESTRADIOL. [Suspect]
     Active Substance: ESTRADIOL
     Indication: SALPINGO-OOPHORECTOMY BILATERAL
     Dosage: UNK
     Route: 065
  2. LUPRON [Suspect]
     Active Substance: LEUPROLIDE ACETATE
     Indication: HYSTERECTOMY
     Dosage: UNK
     Route: 065
     Dates: start: 1999
  3. COUMADIN [Suspect]
     Active Substance: WARFARIN SODIUM
     Indication: PULMONARY EMBOLISM
     Dosage: UNK
     Route: 065
     Dates: start: 199804, end: 2001
  4. LUPRON [Suspect]
     Active Substance: LEUPROLIDE ACETATE
     Indication: SALPINGO-OOPHORECTOMY BILATERAL
     Route: 065
  5. ESTRADIOL. [Suspect]
     Active Substance: ESTRADIOL
     Indication: HYSTERECTOMY
     Route: 065

REACTIONS (3)
  - Deep vein thrombosis [Unknown]
  - Pulmonary embolism [Unknown]
  - Prothrombin time abnormal [Unknown]

NARRATIVE: CASE EVENT DATE: 1998
